FAERS Safety Report 8906568 (Version 1)
Quarter: 2012Q4

REPORT INFORMATION
  Report Type: 
  Country: US (occurrence: US)
  Receive Date: 20121114
  Receipt Date: 20121114
  Transmission Date: 20130627
  Serious: No
  Sender: FDA-Public Use
  Company Number: US-ASTRAZENECA-2012SE83828

PATIENT
  Age: 64 Year
  Sex: Female

DRUGS (3)
  1. NEXIUM [Suspect]
     Route: 048
  2. CELEXA [Concomitant]
  3. RANITIDINE HYDROCHLORIDE [Concomitant]
     Indication: HYPERCHLORHYDRIA

REACTIONS (3)
  - Hyperchlorhydria [Unknown]
  - Malaise [Unknown]
  - Drug ineffective [Unknown]
